FAERS Safety Report 18941835 (Version 1)
Quarter: 2021Q1

REPORT INFORMATION
  Report Type: Spontaneous
  Country: FR (occurrence: FR)
  Receive Date: 20210225
  Receipt Date: 20210225
  Transmission Date: 20210420
  Serious: Yes (Hospitalization)
  Sender: FDA-Public Use
  Company Number: FR-TEVA-2021-FR-1883408

PATIENT
  Age: 72 Year
  Sex: Male
  Weight: 69 kg

DRUGS (13)
  1. ALIMTA [Suspect]
     Active Substance: PEMETREXED DISODIUM
     Indication: ADENOCARCINOMA
     Dosage: SEE COMMENT
     Route: 042
     Dates: start: 20201201, end: 20201230
  2. ENALAPRIL (MALEATE D) [Concomitant]
     Active Substance: ENALAPRIL MALEATE
     Route: 048
  3. KEYTRUDA [Suspect]
     Active Substance: PEMBROLIZUMAB
     Indication: ADENOCARCINOMA
     Dosage: SEE COMMENT
     Route: 042
     Dates: start: 20201201, end: 20201230
  4. ACIDE FOLIQUE [Concomitant]
     Active Substance: FOLIC ACID
     Indication: ADENOCARCINOMA
     Dosage: SEE COMMENT
     Route: 048
     Dates: start: 20201020
  5. ALLOPURINOL. [Concomitant]
     Active Substance: ALLOPURINOL
     Dosage: SEE COMMENT
  6. SOLU?MEDROL [Concomitant]
     Active Substance: METHYLPREDNISOLONE SODIUM SUCCINATE
     Indication: ADENOCARCINOMA
     Dosage: SEE COMMENT
     Route: 048
     Dates: start: 20201201, end: 20201230
  7. SPIRONOLACTONE. [Concomitant]
     Active Substance: SPIRONOLACTONE
     Dosage: SEE COMMENT
     Route: 048
  8. ZOPHREN 8 MG, COMPRIME PELLICULE [Suspect]
     Active Substance: ONDANSETRON HYDROCHLORIDE
     Indication: ADENOCARCINOMA
     Dosage: 1 DOSAGE FORMS
     Route: 048
     Dates: start: 20201201, end: 20201230
  9. ROSUVASTATINE [Concomitant]
     Active Substance: ROSUVASTATIN
     Dosage: SEE COMMENT
     Route: 048
  10. PLAVIX [Concomitant]
     Active Substance: CLOPIDOGREL BISULFATE
     Route: 048
  11. CARBOPLATINE [Suspect]
     Active Substance: CARBOPLATIN
     Indication: ADENOCARCINOMA
     Dosage: SEE COMMENT
     Route: 042
     Dates: start: 20201201, end: 20201201
  12. FUROSEMIDE. [Concomitant]
     Active Substance: FUROSEMIDE
     Dosage: SEE COMMENT
     Route: 048
  13. BISOPROLOL (FUMARATE ACIDE DE) [Concomitant]
     Active Substance: BISOPROLOL FUMARATE
     Dosage: SEE COMMENT
     Route: 048

REACTIONS (1)
  - Toxic epidermal necrolysis [Recovering/Resolving]

NARRATIVE: CASE EVENT DATE: 20201203
